FAERS Safety Report 17257345 (Version 8)
Quarter: 2021Q4

REPORT INFORMATION
  Report Type: Spontaneous
  Country: US (occurrence: US)
  Receive Date: 20200110
  Receipt Date: 20211129
  Transmission Date: 20220303
  Serious: Yes (Other)
  Sender: FDA-Public Use
  Company Number: US-PFIZER INC-2020009745

PATIENT
  Age: 52 Year
  Sex: Female
  Weight: 66 kg

DRUGS (4)
  1. PREMPRO [Suspect]
     Active Substance: ESTROGENS, CONJUGATED\MEDROXYPROGESTERONE ACETATE
     Indication: Sleep disorder
     Dosage: UNK, 1X/DAY (1 A DAY 03 MG / 1.5 MG/1 PILL AT NIGHT AT BED TIME)
     Dates: start: 1992
  2. PREMPRO [Suspect]
     Active Substance: ESTROGENS, CONJUGATED\MEDROXYPROGESTERONE ACETATE
     Indication: Balance disorder
  3. PREMPRO [Suspect]
     Active Substance: ESTROGENS, CONJUGATED\MEDROXYPROGESTERONE ACETATE
     Indication: Hot flush
  4. PRAVASTATIN [Concomitant]
     Active Substance: PRAVASTATIN
     Dosage: 10 MG, 1X/DAY

REACTIONS (5)
  - Hypoacusis [Unknown]
  - Pollakiuria [Unknown]
  - Drug effective for unapproved indication [Unknown]
  - Off label use [Unknown]
  - Cystitis [Unknown]

NARRATIVE: CASE EVENT DATE: 19920101
